FAERS Safety Report 25171495 (Version 1)
Quarter: 2025Q2

REPORT INFORMATION
  Report Type: Spontaneous
  Country: GB (occurrence: GB)
  Receive Date: 20250408
  Receipt Date: 20250408
  Transmission Date: 20250716
  Serious: Yes (Other)
  Sender: TORRENT
  Company Number: None

PATIENT
  Age: 76 Year
  Sex: Male
  Weight: 68 kg

DRUGS (3)
  1. LAMOTRIGINE [Suspect]
     Active Substance: LAMOTRIGINE
     Indication: Epilepsy
     Route: 065
     Dates: start: 20240429
  2. IBUPROFEN [Concomitant]
     Active Substance: IBUPROFEN
     Indication: Arthritis
     Route: 065
  3. TAMSULOSIN [Concomitant]
     Active Substance: TAMSULOSIN
     Indication: Prostatomegaly
     Route: 065
     Dates: start: 20230701

REACTIONS (1)
  - Blood pressure increased [Not Recovered/Not Resolved]

NARRATIVE: CASE EVENT DATE: 20240601
